FAERS Safety Report 4377951-X (Version None)
Quarter: 2004Q2

REPORT INFORMATION
  Report Type: 
  Country: None (occurrence: None)
  Receive Date: 20040614
  Receipt Date: 20040607
  Transmission Date: 20050107
  Serious: Yes (Other)
  Sender: FDA-Public Use
  Company Number: 200412264FR

PATIENT
  Age: 78 Year
  Sex: Female
  Weight: 85 kg

DRUGS (15)
  1. LANTUS [Suspect]
     Indication: DIABETES MELLITUS NON-INSULIN-DEPENDENT
     Route: 058
     Dates: start: 20040212
  2. DAONIL [Concomitant]
     Indication: DIABETES MELLITUS NON-INSULIN-DEPENDENT
     Route: 048
     Dates: start: 20040212, end: 20040211
  3. LASILIX [Concomitant]
     Indication: CARDIAC FAILURE
     Route: 048
  4. LASILIX [Concomitant]
     Indication: CARDIOMEGALY
     Route: 048
  5. SPECIAFOLDINE [Concomitant]
     Indication: HYPERHOMOCYSTEINAEMIA
     Route: 048
  6. ASPEGIC 325 [Concomitant]
     Indication: CARDIAC FAILURE
     Route: 048
  7. ASPEGIC 325 [Concomitant]
     Indication: CARDIOMEGALY
     Route: 048
  8. DAFLON [Concomitant]
     Indication: HYPERHOMOCYSTEINAEMIA
     Route: 048
  9. EUPRESSYL [Concomitant]
     Indication: HYPERTENSION
     Route: 048
  10. COVERSYL [Concomitant]
     Indication: HYPERTENSION
     Route: 048
  11. PHYSIOTENS [Concomitant]
     Indication: HYPERTENSION
     Route: 048
  12. NICARDIPINE HCL [Concomitant]
     Indication: HYPERTENSION
     Route: 048
     Dates: start: 20040201
  13. LEVOTHYROXINE SODIUM [Concomitant]
     Indication: THYROID NEOPLASM
     Route: 048
  14. ZOCOR [Concomitant]
     Indication: HYPERCHOLESTEROLAEMIA
     Route: 048
  15. TARDYFERON [Concomitant]
     Route: 048

REACTIONS (7)
  - CARDIAC FAILURE [None]
  - CONDITION AGGRAVATED [None]
  - DYSPNOEA EXERTIONAL [None]
  - FLUID RETENTION [None]
  - OEDEMA PERIPHERAL [None]
  - SODIUM RETENTION [None]
  - WEIGHT INCREASED [None]
